FAERS Safety Report 5732487-6 (Version None)
Quarter: 2008Q2

REPORT INFORMATION
  Report Type: 
  Country: None (occurrence: None)
  Receive Date: 20080508
  Receipt Date: 20080501
  Transmission Date: 20081010
  Serious: Yes (Hospitalization, Other)
  Sender: FDA-Public Use
  Company Number: US-GENENTECH-258295

PATIENT
  Sex: Male
  Weight: 72.95 kg

DRUGS (7)
  1. AVASTIN [Suspect]
     Indication: PANCREATIC CARCINOMA
     Dosage: 370 MG, Q2W
     Route: 042
     Dates: start: 20080123, end: 20080221
  2. OXYCONTIN [Concomitant]
     Indication: PAIN
     Dosage: 3 TABLET, BID, PRN
     Route: 048
  3. AMBIEN [Concomitant]
     Indication: INSOMNIA
     Dosage: 10 MG, QHS, PRN
     Route: 048
  4. LOMOTIL [Concomitant]
     Indication: DIARRHOEA
     Dosage: 2 TABLET, PRN
     Route: 048
  5. PROTONIX [Concomitant]
     Indication: DRUG USE FOR UNKNOWN INDICATION
  6. CARAFATE [Concomitant]
     Indication: DRUG USE FOR UNKNOWN INDICATION
  7. CREON [Concomitant]
     Indication: DRUG USE FOR UNKNOWN INDICATION

REACTIONS (1)
  - CHOLANGITIS [None]
